FAERS Safety Report 22295661 (Version 8)
Quarter: 2024Q3

REPORT INFORMATION
  Report Type: Report from Study
  Country: US (occurrence: US)
  Receive Date: 20230508
  Receipt Date: 20240711
  Transmission Date: 20241017
  Serious: Yes (Disabling, Other)
  Sender: AMGEN
  Company Number: US-HORIZON THERAPEUTICS-HZN-2022-000678

PATIENT
  Age: 51 Year
  Sex: Male
  Weight: 101.13 kg

DRUGS (22)
  1. TEPEZZA [Suspect]
     Active Substance: TEPROTUMUMAB-TRBW
     Indication: Endocrine ophthalmopathy
     Dosage: 1090 MILLIGRAM (FIRST INFUSION)
     Route: 042
     Dates: start: 20210914, end: 20210914
  2. TEPEZZA [Suspect]
     Active Substance: TEPROTUMUMAB-TRBW
     Indication: Toxic goitre
     Dosage: 2180 MILLIGRAM (SECOND INFUSION)
     Route: 042
     Dates: start: 20211005, end: 20211005
  3. TEPEZZA [Suspect]
     Active Substance: TEPROTUMUMAB-TRBW
     Dosage: 2130 MILLIGRAM (THIRD INFUSION)
     Route: 042
     Dates: start: 20211210, end: 20211210
  4. TEPEZZA [Suspect]
     Active Substance: TEPROTUMUMAB-TRBW
     Dosage: 2180 MILLIGRAM (FOURTH INFUSION)
     Route: 042
     Dates: start: 20211231, end: 20211231
  5. TEPEZZA [Suspect]
     Active Substance: TEPROTUMUMAB-TRBW
     Dosage: 2180 MILLIGRAM (FIFTH INFUSION)
     Route: 042
     Dates: start: 20220121, end: 20220121
  6. TEPEZZA [Suspect]
     Active Substance: TEPROTUMUMAB-TRBW
     Dosage: 2180 MILLIGRAM (SIXTH INFUSION)
     Route: 042
     Dates: start: 20220211, end: 20220211
  7. TEPEZZA [Suspect]
     Active Substance: TEPROTUMUMAB-TRBW
     Dosage: 2180 MILLIGRAM (SEVENTH INFUSION)
     Route: 042
     Dates: start: 20220304, end: 20220304
  8. TEPEZZA [Suspect]
     Active Substance: TEPROTUMUMAB-TRBW
     Dosage: 2180 MILLIGRAM (EIGHT INFUSION)
     Route: 042
     Dates: start: 20220325, end: 20220325
  9. PREDNISONE [Suspect]
     Active Substance: PREDNISONE
     Indication: Pharyngitis
     Dosage: 20 MILLIGRAM, QD (ONE TABLET)
     Route: 048
     Dates: start: 20240601
  10. METHIMAZOLE [Concomitant]
     Active Substance: METHIMAZOLE
     Indication: Product used for unknown indication
     Dosage: 10 MILLIGRAM, BID
     Route: 048
  11. XANAX [Concomitant]
     Active Substance: ALPRAZOLAM
     Indication: Product used for unknown indication
     Dosage: 1 MILLIGRAM, Q8H
     Route: 048
  12. FLEXERIL [Concomitant]
     Active Substance: CYCLOBENZAPRINE HYDROCHLORIDE
     Indication: Product used for unknown indication
     Dosage: 10 MILLIGRAM
  13. LASIX [Concomitant]
     Active Substance: FUROSEMIDE
     Indication: Product used for unknown indication
     Dosage: 40 MILLIGRAM
     Route: 048
  14. NORCO [Concomitant]
     Active Substance: ACETAMINOPHEN\HYDROCODONE BITARTRATE
     Indication: Product used for unknown indication
     Dosage: UNK (10-325 MG PER TABLET)
     Route: 065
  15. AVAPRO [Concomitant]
     Active Substance: IRBESARTAN
     Indication: Product used for unknown indication
     Dosage: 300 MILLIGRAM, QD
     Route: 048
  16. LOPRESSOR [Concomitant]
     Active Substance: METOPROLOL TARTRATE
     Indication: Product used for unknown indication
     Dosage: 50 MG
     Route: 048
  17. PRILOSEC [Concomitant]
     Active Substance: OMEPRAZOLE MAGNESIUM
     Indication: Product used for unknown indication
     Dosage: 40 MILLIGRAM
     Route: 048
  18. TESTOSTERONE [Concomitant]
     Active Substance: TESTOSTERONE
     Dosage: UNK UNK, QWK
  19. SOLU-MEDROL [Concomitant]
     Active Substance: METHYLPREDNISOLONE SODIUM SUCCINATE
     Dosage: 1 GRAM, QWK
     Route: 065
  20. TESTOSTERONE CYPIONATE [Concomitant]
     Active Substance: TESTOSTERONE CYPIONATE
     Dosage: 1 MILLILITER, QWK
     Route: 030
     Dates: start: 20220327
  21. CARVEDILOL [Concomitant]
     Active Substance: CARVEDILOL
     Dosage: 25 MILLIGRAM
     Route: 065
     Dates: start: 20220609
  22. BETADINE [Concomitant]
     Active Substance: POVIDONE-IODINE
     Dosage: UNK
     Route: 065

REACTIONS (34)
  - Deafness permanent [Unknown]
  - Physical disability [Unknown]
  - Disability [Unknown]
  - Anxiety [Unknown]
  - Discomfort [Unknown]
  - Concomitant disease aggravated [Unknown]
  - Pain [Unknown]
  - Injury [Unknown]
  - Emotional distress [Unknown]
  - Impaired quality of life [Unknown]
  - Muscle spasms [Recovering/Resolving]
  - Tinnitus [Unknown]
  - Dry skin [Recovering/Resolving]
  - Economic problem [Unknown]
  - Skin disorder [Unknown]
  - Lower urinary tract symptoms [Unknown]
  - Abscess limb [Unknown]
  - Cellulitis [Unknown]
  - Skin infection [Unknown]
  - Dysuria [Unknown]
  - Back pain [Unknown]
  - Chills [Unknown]
  - Chromaturia [Unknown]
  - Subcutaneous abscess [Unknown]
  - Myalgia [Unknown]
  - Blood pressure increased [Unknown]
  - Abscess [Unknown]
  - Headache [Unknown]
  - Skin lesion [Unknown]
  - Pharyngitis [Unknown]
  - Acute sinusitis [Unknown]
  - Hypersensitivity [Unknown]
  - Erythema [Unknown]
  - Staphylococcal infection [Unknown]

NARRATIVE: CASE EVENT DATE: 20220101
